FAERS Safety Report 7346089-1 (Version None)
Quarter: 2011Q1

REPORT INFORMATION
  Report Type: 
  Country: None (occurrence: None)
  Receive Date: 20110311
  Receipt Date: 20090917
  Transmission Date: 20110831
  Serious: Yes (Death, Other)
  Sender: FDA-Public Use
  Company Number: US-BAYER-201039226NA

PATIENT
  Sex: Male
  Weight: 86.621 kg

DRUGS (9)
  1. PANCURONIUM BROMIDE [Concomitant]
     Indication: PRODUCT USED FOR UNKNOWN INDICATION
     Dosage: UNK
     Dates: start: 20041021, end: 20041021
  2. INSULIN [Concomitant]
     Indication: BLOOD GLUCOSE ABNORMAL
     Dosage: UNK
     Dates: start: 20041021, end: 20041021
  3. FENTANYL [Concomitant]
     Indication: AMNESIA
     Dosage: 250 MCG
     Route: 042
     Dates: start: 20041021, end: 20041021
  4. NITROGLYCERIN [Concomitant]
     Indication: VASODILATION PROCEDURE
     Dosage: UNK
     Dates: start: 20041021, end: 20041021
  5. TRASYLOL [Suspect]
     Indication: CORONARY ARTERY BYPASS
     Dosage: 200 ML, UNK
     Route: 042
     Dates: start: 20041011
  6. ZINACEF [Concomitant]
     Indication: ANTIBIOTIC THERAPY
     Dosage: 1.5 G, UNK
     Route: 042
     Dates: start: 20041021, end: 20041021
  7. MIDAZOLAM [Concomitant]
     Dosage: UNK
     Dates: start: 20041021, end: 20041021
  8. EPINEPHRINE [Concomitant]
     Indication: PRODUCT USED FOR UNKNOWN INDICATION
     Dosage: UNK
     Dates: start: 20041021, end: 20041021
  9. SUCCINYLCHOLINE CHLORIDE [Concomitant]
     Indication: PARALYSIS
     Dosage: UNK
     Dates: start: 20041021, end: 20041021

REACTIONS (9)
  - UNEVALUABLE EVENT [None]
  - RENAL FAILURE [None]
  - PAIN [None]
  - CHRONIC OBSTRUCTIVE PULMONARY DISEASE [None]
  - DEPRESSION [None]
  - FEAR [None]
  - RESPIRATORY FAILURE [None]
  - INJURY [None]
  - ANXIETY [None]
